FAERS Safety Report 15646719 (Version 3)
Quarter: 2019Q1

REPORT INFORMATION
  Report Type: Report from Study
  Country: None (occurrence: DO)
  Receive Date: 20181122
  Receipt Date: 20190128
  Transmission Date: 20190417
  Serious: No
  Sender: FDA-Public Use
  Company Number: DO-ABBVIE-18K-279-2562154-00

PATIENT
  Age: 58 Year
  Sex: Female

DRUGS (3)
  1. HUMIRA [Suspect]
     Active Substance: ADALIMUMAB
     Indication: RHEUMATOID ARTHRITIS
     Route: 058
     Dates: start: 20140120
  2. CLOPIDOGREL [Concomitant]
     Active Substance: CLOPIDOGREL BISULFATE
     Indication: HYPERTENSION
     Route: 048
     Dates: start: 20151116
  3. PREDNISOLONE. [Concomitant]
     Active Substance: PREDNISOLONE
     Indication: PAIN
     Route: 048
     Dates: start: 20151116

REACTIONS (8)
  - Peripheral swelling [Not Recovered/Not Resolved]
  - Rheumatoid vasculitis [Not Recovered/Not Resolved]
  - Pain in extremity [Unknown]
  - Pain in extremity [Not Recovered/Not Resolved]
  - Back pain [Unknown]
  - Tachycardia [Unknown]
  - Rheumatoid arthritis [Recovering/Resolving]
  - Back pain [Not Recovered/Not Resolved]

NARRATIVE: CASE EVENT DATE: 20181116
